FAERS Safety Report 7901905-7 (Version None)
Quarter: 2011Q4

REPORT INFORMATION
  Report Type: 
  Country: None (occurrence: None)
  Receive Date: 20111107
  Receipt Date: 20111107
  Transmission Date: 20120403
  Serious: No
  Sender: FDA-Public Use
  Company Number: None

PATIENT
  Sex: Male
  Weight: 78.5 kg

DRUGS (9)
  1. DOXYCYCLINE [Concomitant]
  2. HYDROCODONE BITARTRATE [Concomitant]
  3. PROCHLORPERAZINE [Concomitant]
  4. ERBITUX [Suspect]
     Dosage: 500 MG
  5. TAXOL [Suspect]
     Dosage: 400 MG
  6. MINOCYCLIN HCL [Concomitant]
  7. CARBOPLATIN [Suspect]
     Dosage: 600 MG
  8. ONDANSETRON [Concomitant]
  9. BEVACIZUMAB (RHUMAB VEGF) [Suspect]
     Dosage: 1245 MG

REACTIONS (1)
  - CARDIO-RESPIRATORY ARREST [None]
